FAERS Safety Report 20081160 (Version 1)
Quarter: 2021Q4

REPORT INFORMATION
  Report Type: Spontaneous
  Country: US (occurrence: US)
  Receive Date: 20211117
  Receipt Date: 20211117
  Transmission Date: 20220303
  Serious: No
  Sender: FDA-Public Use
  Company Number: US-BIOVITRUM-2021US1046

PATIENT
  Age: 74 Year
  Sex: Female

DRUGS (1)
  1. KINERET [Suspect]
     Active Substance: ANAKINRA
     Indication: Schnitzler^s syndrome
     Route: 058
     Dates: start: 20211104

REACTIONS (4)
  - Umbilical hernia [Not Recovered/Not Resolved]
  - Malaise [Unknown]
  - Injection site pain [Unknown]
  - Off label use [Not Recovered/Not Resolved]

NARRATIVE: CASE EVENT DATE: 20211104
